FAERS Safety Report 5660368-5 (Version None)
Quarter: 2008Q1

REPORT INFORMATION
  Report Type: 
  Country: None (occurrence: None)
  Receive Date: 20080311
  Receipt Date: 20071005
  Transmission Date: 20080703
  Serious: No
  Sender: FDA-Public Use
  Company Number: US-BAYER-200713264BCC

PATIENT
  Age: 83 Year
  Sex: Male
  Weight: 102 kg

DRUGS (14)
  1. ALEVE [Suspect]
     Indication: BACK PAIN
     Dosage: TOTAL DAILY DOSE: 220 MG  UNIT DOSE: 220 MG
     Route: 048
     Dates: start: 20070908
  2. ALEVE [Suspect]
     Dosage: TOTAL DAILY DOSE: 440 MG  UNIT DOSE: 220 MG
     Route: 048
     Dates: start: 20070909, end: 20071003
  3. ISOSORBIDE DINITRATE [Concomitant]
  4. LOVASTATIN [Concomitant]
  5. LISINOPRIL [Concomitant]
  6. HYDROCHLOROTHIAZIDE [Concomitant]
  7. NITROGLYCERIN [Concomitant]
     Route: 060
  8. ASPIRIN (NOT BAYER) [Concomitant]
  9. BETA CAROTENE [Concomitant]
  10. ZINC [Concomitant]
  11. ESTER C [Concomitant]
  12. CENTRUM [Concomitant]
  13. FISH OIL [Concomitant]
  14. GLUCOSAMINE W/CHONDROITIN [Concomitant]

REACTIONS (2)
  - ABNORMAL DREAMS [None]
  - BACK PAIN [None]
